FAERS Safety Report 9066429 (Version 1)
Quarter: 2013Q1

REPORT INFORMATION
  Report Type: Spontaneous
  Country: SE (occurrence: SE)
  Receive Date: 20130214
  Receipt Date: 20130214
  Transmission Date: 20140127
  Serious: Yes (Hospitalization)
  Sender: FDA-Public Use
  Company Number: SE-ROCHE-1188528

PATIENT
  Age: 46 None
  Sex: Female

DRUGS (5)
  1. HERCEPTIN [Suspect]
     Indication: BREAST CANCER
     Route: 065
     Dates: start: 20120423, end: 20120903
  2. DOCETAXEL [Concomitant]
     Indication: BREAST CANCER
     Route: 065
     Dates: start: 20120423, end: 20120604
  3. FARMARUBICINE [Concomitant]
     Indication: BREAST CANCER
     Route: 065
     Dates: start: 20120702, end: 20120813
  4. FLUOROURACIL [Concomitant]
     Indication: BREAST CANCER
     Route: 065
     Dates: start: 20120702, end: 20120813
  5. CYCLOFOSFAMIDE [Concomitant]
     Indication: BREAST CANCER
     Route: 065
     Dates: start: 20120702, end: 20120813

REACTIONS (4)
  - Pyrexia [Unknown]
  - Chills [Unknown]
  - Fatigue [Unknown]
  - Weight increased [Unknown]
